FAERS Safety Report 7996607-5 (Version None)
Quarter: 2011Q4

REPORT INFORMATION
  Report Type: 
  Country: None (occurrence: None)
  Receive Date: 20111221
  Receipt Date: 20111214
  Transmission Date: 20120403
  Serious: Yes (Hospitalization)
  Sender: FDA-Public Use
  Company Number: US-BIOGENIDEC-2011BI047552

PATIENT
  Age: 29 Year
  Sex: Female

DRUGS (1)
  1. AVONEX [Suspect]
     Indication: MULTIPLE SCLEROSIS
     Route: 030
     Dates: start: 20110601

REACTIONS (6)
  - MULTIPLE SCLEROSIS RELAPSE [None]
  - CHILLS [None]
  - SICK SINUS SYNDROME [None]
  - ARTHRALGIA [None]
  - TREMOR [None]
  - BRADYCARDIA [None]
